FAERS Safety Report 4710359-3 (Version None)
Quarter: 2005Q3

REPORT INFORMATION
  Report Type: 
  Country: None (occurrence: None)
  Receive Date: 20050707
  Receipt Date: 20050624
  Transmission Date: 20060218
  Serious: Yes (Hospitalization, Other)
  Sender: FDA-Public Use
  Company Number: 2005093311

PATIENT
  Age: 58 Year
  Sex: Female
  Weight: 77.5651 kg

DRUGS (3)
  1. ESTRING [Suspect]
     Indication: OESTROGEN REPLACEMENT THERAPY
     Dosage: (2 MG, CYCLICAL), VAGINAL
     Route: 067
     Dates: start: 20030101
  2. NEXIUM [Concomitant]
  3. FOSAMAX [Concomitant]

REACTIONS (7)
  - BLADDER PROLAPSE [None]
  - FIBROMA [None]
  - FUNGAL INFECTION [None]
  - POST PROCEDURAL COMPLICATION [None]
  - VAGINAL DISORDER [None]
  - VULVOVAGINAL DISCOMFORT [None]
  - VULVOVAGINAL DRYNESS [None]
